FAERS Safety Report 4924849-1 (Version None)
Quarter: 2006Q1

REPORT INFORMATION
  Report Type: 
  Country: None (occurrence: None)
  Receive Date: 20060227
  Receipt Date: 20051207
  Transmission Date: 20060701
  Serious: Yes (Hospitalization)
  Sender: FDA-Public Use
  Company Number: US-MERCK-0512USA01324

PATIENT
  Age: 75 Year
  Sex: Female
  Weight: 55 kg

DRUGS (2)
  1. VIOXX [Suspect]
     Indication: ARTHRITIS
     Route: 048
     Dates: start: 19990101, end: 20040101
  2. ASPIRIN [Concomitant]
     Route: 065

REACTIONS (7)
  - BILIARY COLIC [None]
  - CEREBROVASCULAR ACCIDENT [None]
  - CHEST DISCOMFORT [None]
  - HYPERTENSION [None]
  - OSTEOPOROSIS [None]
  - SPINAL COMPRESSION FRACTURE [None]
  - VENTRICULAR EXTRASYSTOLES [None]
